FAERS Safety Report 9274378 (Version 1)
Quarter: 2013Q2

REPORT INFORMATION
  Report Type: Spontaneous
  Country: US (occurrence: US)
  Receive Date: 20130506
  Receipt Date: 20130506
  Transmission Date: 20140414
  Serious: No
  Sender: FDA-Public Use
  Company Number: US-TEVA-401985USA

PATIENT
  Age: 45 Year
  Sex: Female

DRUGS (8)
  1. PROAIR HFA [Suspect]
     Indication: ASTHMA
  2. HUMIRA [Concomitant]
     Indication: RHEUMATOID ARTHRITIS
     Dosage: PRN
     Route: 048
  3. HYDROCODONE W/ACETAMINOPHEN [Concomitant]
     Indication: PAIN
     Dosage: PRN
     Route: 048
  4. TYLENOL W/CODEINE NO. 3 [Concomitant]
     Indication: PAIN
  5. ALPRAZOLAM [Concomitant]
     Indication: ANXIETY
     Dosage: PRN
     Route: 048
  6. EPIPEN [Concomitant]
     Indication: ANAPHYLACTIC REACTION
  7. FLEXERIL [Concomitant]
  8. REMERON [Concomitant]
     Indication: ANXIETY

REACTIONS (1)
  - Pain [Not Recovered/Not Resolved]
